FAERS Safety Report 14984059 (Version 9)
Quarter: 2019Q1

REPORT INFORMATION
  Report Type: Spontaneous
  Country: CA (occurrence: CA)
  Receive Date: 20180607
  Receipt Date: 20190329
  Transmission Date: 20190417
  Serious: Yes (Other)
  Sender: FDA-Public Use
  Company Number: CA-CELLTRION INC.-2018CA020012

PATIENT

DRUGS (13)
  1. INFLECTRA [Suspect]
     Active Substance: INFLIXIMAB-DYYB
     Indication: RHEUMATOID ARTHRITIS
     Dosage: 5 MG/KG,  0,2,6 WEEKS, THEN EVERY 8 WEEKS
     Route: 042
     Dates: start: 20180515
  2. INFLECTRA [Suspect]
     Active Substance: INFLIXIMAB-DYYB
     Dosage: 5 MG/KG,  0,2,6 WEEKS, THEN EVERY 8 WEEKS
     Route: 042
     Dates: start: 20181116, end: 20181116
  3. METHOTREXATE. [Concomitant]
     Active Substance: METHOTREXATE
     Dosage: 15 MG ONCE A WEEK
     Route: 058
  4. HUMIRA [Concomitant]
     Active Substance: ADALIMUMAB
  5. ACTEMRA [Concomitant]
     Active Substance: TOCILIZUMAB
  6. INFLECTRA [Suspect]
     Active Substance: INFLIXIMAB-DYYB
     Dosage: 5 MG/KG,  0,2,6 WEEKS, THEN EVERY 8 WEEKS
     Route: 042
     Dates: start: 20180605
  7. INFLECTRA [Suspect]
     Active Substance: INFLIXIMAB-DYYB
     Dosage: 5 MG/KG, EVERY 4 WEEKS
     Route: 042
     Dates: start: 20181212
  8. METHOTREXATE. [Concomitant]
     Active Substance: METHOTREXATE
     Dosage: 10 MG ONCE A WEEK FOR 2 WEEKS
     Route: 058
     Dates: start: 20180427
  9. SIMPONI [Concomitant]
     Active Substance: GOLIMUMAB
     Dosage: 50 MG ONCE A MONTH
     Route: 058
  10. KEVZARA [Concomitant]
     Active Substance: SARILUMAB
     Dosage: UNK
     Dates: start: 201707
  11. INFLECTRA [Suspect]
     Active Substance: INFLIXIMAB-DYYB
     Dosage: 5 MG/KG,  0,2,6 WEEKS, THEN EVERY 8 WEEKS
     Route: 042
     Dates: start: 20180706
  12. FOLIC ACID. [Concomitant]
     Active Substance: FOLIC ACID
     Dosage: UNK
  13. INFLECTRA [Suspect]
     Active Substance: INFLIXIMAB-DYYB
     Dosage: 5 MG/KG, EVERY 4 WEEKS
     Route: 042
     Dates: start: 20190109

REACTIONS (7)
  - Arrhythmia [Unknown]
  - Blood pressure fluctuation [Unknown]
  - Product use issue [Unknown]
  - Fatigue [Unknown]
  - Incorrect product administration duration [Unknown]
  - Hypotension [Unknown]
  - Drug effect incomplete [Unknown]

NARRATIVE: CASE EVENT DATE: 20180605
